FAERS Safety Report 8311450-5 (Version None)
Quarter: 2012Q1

REPORT INFORMATION
  Report Type: 
  Country: None (occurrence: None)
  Receive Date: 20120315
  Receipt Date: 20110531
  Transmission Date: 20120608
  Serious: No
  Sender: FDA-Public Use
  Company Number: PHHY2011US41128

PATIENT
  Age: 33 Year
  Sex: Female

DRUGS (3)
  1. LEVONORGESTREL /ETHINYLESTRADIOL (ETHINYLESTRAIOL, LEVONORGESTREL) [Concomitant]
  2. GILENYA [Suspect]
     Indication: MULTIPLE SCLEROSIS
     Dosage: 0.5 MG, QD, ORAL
     Route: 048
     Dates: start: 20110506, end: 20110509
  3. LUNESTA [Concomitant]

REACTIONS (5)
  - NAUSEA [None]
  - ARTHRALGIA [None]
  - FATIGUE [None]
  - ABDOMINAL DISTENSION [None]
  - ABDOMINAL PAIN UPPER [None]
